FAERS Safety Report 8124165-3 (Version None)
Quarter: 2012Q1

REPORT INFORMATION
  Report Type: 
  Country: None (occurrence: None)
  Receive Date: 20120209
  Receipt Date: 20120201
  Transmission Date: 20120608
  Serious: Yes (Hospitalization)
  Sender: FDA-Public Use
  Company Number: FR-B.I. PHARMACEUTICALS,INC./RIDGEFIELD-2012-FF-00079FF

PATIENT
  Sex: Female

DRUGS (1)
  1. PRADAXA [Suspect]
     Indication: JOINT ARTHROPLASTY
     Route: 048
     Dates: start: 20110101, end: 20110101

REACTIONS (2)
  - DYSPNOEA [None]
  - PANIC REACTION [None]
